FAERS Safety Report 15072931 (Version 1)
Quarter: 2018Q2

REPORT INFORMATION
  Report Type: Spontaneous
  Country: CA (occurrence: CA)
  Receive Date: 20180627
  Receipt Date: 20180627
  Transmission Date: 20180711
  Serious: Yes (Other)
  Sender: FDA-Public Use
  Company Number: CA-IPSEN BIOPHARMACEUTICALS, INC.-2018-08811

PATIENT

DRUGS (4)
  1. SOMATULINE AUTOGEL 120MG [Suspect]
     Active Substance: LANREOTIDE ACETATE
     Indication: ACROMEGALY
     Dosage: 120 MG
     Route: 065
  2. CABERGOLINE. [Suspect]
     Active Substance: CABERGOLINE
     Indication: ACROMEGALY
  3. SOMATULINE AUTOGEL 120MG [Suspect]
     Active Substance: LANREOTIDE ACETATE
     Indication: SECRETORY ADENOMA OF PITUITARY
  4. CABERGOLINE. [Suspect]
     Active Substance: CABERGOLINE
     Indication: SECRETORY ADENOMA OF PITUITARY

REACTIONS (2)
  - Insulin-like growth factor increased [Unknown]
  - Gastrectomy [Unknown]
